FAERS Safety Report 7286457-X (Version None)
Quarter: 2011Q1

REPORT INFORMATION
  Report Type: 
  Country: None (occurrence: None)
  Receive Date: 20110210
  Receipt Date: 20110207
  Transmission Date: 20110831
  Serious: Yes (Other)
  Sender: FDA-Public Use
  Company Number: BR-PFIZER INC-2011023903

PATIENT
  Age: 75 Year
  Sex: Female
  Weight: 63 kg

DRUGS (5)
  1. CHAMPIX [Suspect]
     Indication: SMOKING CESSATION THERAPY
     Dosage: UNK
     Route: 048
     Dates: start: 20110128
  2. LEXOTAN [Concomitant]
     Indication: INSOMNIA
     Dosage: UNK
  3. TARGIFOR [Concomitant]
     Indication: ASTHENIA
     Dosage: UNK
  4. ZETSIM [Concomitant]
     Indication: BLOOD CHOLESTEROL INCREASED
     Dosage: 3X/WEEK
  5. NEXIUM [Concomitant]
     Indication: GASTRIC DISORDER
     Dosage: UNK

REACTIONS (13)
  - DEPRESSION [None]
  - INSOMNIA [None]
  - GAIT DISTURBANCE [None]
  - SOMNOLENCE [None]
  - RETCHING [None]
  - APATHY [None]
  - AGITATION [None]
  - DECREASED APPETITE [None]
  - FATIGUE [None]
  - COLD SWEAT [None]
  - LISTLESS [None]
  - ABNORMAL DREAMS [None]
  - NAUSEA [None]
